FAERS Safety Report 5215249-8 (Version None)
Quarter: 2007Q1

REPORT INFORMATION
  Report Type: 
  Country: None (occurrence: None)
  Receive Date: 20061122
  Receipt Date: 20060822
  Transmission Date: 20070707
  Serious: Yes (Other)
  Sender: FDA-Public Use
  Company Number: HQWYE968125AUG06

PATIENT
  Sex: 0

DRUGS (1)
  1. ZOSYN [Suspect]
     Dosage: INTRAVENOUS
     Route: 042

REACTIONS (2)
  - BLOOD MAGNESIUM DECREASED [None]
  - PLATELET COUNT DECREASED [None]
